FAERS Safety Report 25878757 (Version 2)
Quarter: 2025Q4

REPORT INFORMATION
  Report Type: Report from Study
  Country: IN (occurrence: IN)
  Receive Date: 20251003
  Receipt Date: 20251120
  Transmission Date: 20260117
  Serious: Yes (Hospitalization)
  Sender: PFIZER
  Company Number: IN-TAKEDA-2025TUS085260

PATIENT
  Age: 43 Year
  Sex: Male

DRUGS (2)
  1. ADCETRIS [Suspect]
     Active Substance: BRENTUXIMAB VEDOTIN
     Indication: Anaplastic large cell lymphoma T- and null-cell types
     Dosage: 150 MILLIGRAM, 4/WEEK
     Route: 042
     Dates: start: 20250813
  2. ADCETRIS [Suspect]
     Active Substance: BRENTUXIMAB VEDOTIN
     Indication: Peripheral T-cell lymphoma unspecified

REACTIONS (2)
  - Peripheral swelling [Unknown]
  - Pain in extremity [Unknown]
